FAERS Safety Report 23220904 (Version 13)
Quarter: 2025Q1

REPORT INFORMATION
  Report Type: Report from Study
  Country: CA (occurrence: CA)
  Receive Date: 20231123
  Receipt Date: 20250124
  Transmission Date: 20250408
  Serious: Yes (Hospitalization, Other)
  Sender: JOHNSON AND JOHNSON
  Company Number: CA-JNJFOC-20231144525

PATIENT
  Age: 84 Year
  Sex: Female
  Weight: 51 kg

DRUGS (4)
  1. SIMPONI [Suspect]
     Active Substance: GOLIMUMAB
     Indication: Rheumatoid arthritis
     Dosage: LAST  DOSE 25-JUN-2024
     Route: 041
     Dates: start: 20211122
  2. SIMPONI [Suspect]
     Active Substance: GOLIMUMAB
     Route: 041
  3. INFLUENZA VIRUS VACCINE [Concomitant]
     Active Substance: INFLUENZA VIRUS VACCINE
     Indication: Prophylaxis
  4. COVID-19 VACCINE [Concomitant]
     Indication: Prophylaxis

REACTIONS (6)
  - Localised infection [Recovered/Resolved]
  - Osteomyelitis [Recovering/Resolving]
  - Osteomyelitis [Recovered/Resolved]
  - Sepsis [Unknown]
  - Rheumatoid arthritis [Unknown]
  - Therapeutic response decreased [Unknown]

NARRATIVE: CASE EVENT DATE: 20231001
